FAERS Safety Report 8130275-7 (Version None)
Quarter: 2012Q1

REPORT INFORMATION
  Report Type: 
  Country: None (occurrence: None)
  Receive Date: 20120210
  Receipt Date: 20120203
  Transmission Date: 20120608
  Serious: Yes (Other)
  Sender: FDA-Public Use
  Company Number: PHHO2010AR01058

PATIENT
  Sex: Male
  Weight: 76 kg

DRUGS (1)
  1. EVEROLIMUS [Suspect]
     Indication: HEART TRANSPLANT
     Dosage: 0.75 MG, BID
     Dates: start: 20070822, end: 20090810

REACTIONS (2)
  - SQUAMOUS CELL CARCINOMA OF SKIN [None]
  - PNEUMONITIS [None]
